FAERS Safety Report 7571223-8 (Version None)
Quarter: 2011Q2

REPORT INFORMATION
  Report Type: 
  Country: None (occurrence: None)
  Receive Date: 20110624
  Receipt Date: 20110607
  Transmission Date: 20111010
  Serious: Yes (Other)
  Sender: FDA-Public Use
  Company Number: A0903719A

PATIENT
  Age: 59 Year
  Sex: Female

DRUGS (8)
  1. GLIPIZIDE [Concomitant]
  2. JANUVIA [Concomitant]
  3. ACTOS [Concomitant]
  4. SIMVASTATIN [Concomitant]
  5. CARVEDILOL [Concomitant]
  6. AVANDIA [Suspect]
     Indication: TYPE 2 DIABETES MELLITUS
     Dosage: 1TAB PER DAY
     Route: 048
     Dates: start: 19960101, end: 20050101
  7. AVANDAMET [Suspect]
     Indication: DIABETES MELLITUS
  8. ENALAPRIL MALEATE [Concomitant]

REACTIONS (19)
  - HYPERTENSION [None]
  - DYSPHAGIA [None]
  - SUICIDAL IDEATION [None]
  - DIPLOPIA [None]
  - HYPERTHYROIDISM [None]
  - ASTHENIA [None]
  - ABDOMINAL DISTENSION [None]
  - DEPRESSION [None]
  - PHOTOPHOBIA [None]
  - CARDIOMEGALY [None]
  - BLOOD CHOLESTEROL INCREASED [None]
  - FATIGUE [None]
  - HYPERPHAGIA [None]
  - CARDIAC DISORDER [None]
  - GENERAL PHYSICAL HEALTH DETERIORATION [None]
  - EXERCISE TOLERANCE DECREASED [None]
  - VISION BLURRED [None]
  - LACRIMATION INCREASED [None]
  - BACK PAIN [None]
